FAERS Safety Report 5792848-6 (Version None)
Quarter: 2008Q2

REPORT INFORMATION
  Report Type: 
  Country: None (occurrence: None)
  Receive Date: 20080627
  Receipt Date: 20080623
  Transmission Date: 20081010
  Serious: Yes (Hospitalization)
  Sender: FDA-Public Use
  Company Number: NL-RANBAXY-2008RR-16068

PATIENT

DRUGS (3)
  1. CLARITHROMYCINE GRANULAAT VOOR ORALE SUSPENSIE 125MG/5ML [Suspect]
     Indication: PNEUMONIA
     Dosage: UNK
  2. COLCHICINE [Suspect]
     Indication: VASCULITIS
     Dosage: 0.5 MG, QD
  3. SIMVASTATINE 20 RANBAXY FILMOHULDE TABLETTEN 20MG [Suspect]
     Dosage: 20 MG, QD

REACTIONS (1)
  - NEUROMYOPATHY [None]
